FAERS Safety Report 6609496-8 (Version None)
Quarter: 2010Q1

REPORT INFORMATION
  Report Type: 
  Country: None (occurrence: None)
  Receive Date: 20100302
  Receipt Date: 20100219
  Transmission Date: 20100710
  Serious: Yes (Hospitalization)
  Sender: FDA-Public Use
  Company Number: US-JNJFOC-20100210277

PATIENT
  Age: 2 Year
  Sex: Female

DRUGS (2)
  1. ACETAMINOPHEN INFANTS' [Suspect]
     Route: 048
  2. ACETAMINOPHEN INFANTS' [Suspect]
     Indication: PYREXIA
     Dosage: 3 TO 4 DAYS DURATION
     Route: 048

REACTIONS (4)
  - DEHYDRATION [None]
  - HAEMATEMESIS [None]
  - HEPATIC FAILURE [None]
  - RENAL FUNCTION TEST ABNORMAL [None]
